FAERS Safety Report 10245208 (Version 2)
Quarter: 2014Q2

REPORT INFORMATION
  Report Type: Spontaneous
  Country: CA (occurrence: CA)
  Receive Date: 20140618
  Receipt Date: 20140623
  Transmission Date: 20141212
  Serious: Yes (Other)
  Sender: FDA-Public Use
  Company Number: PHHY2014CA072437

PATIENT
  Age: 39 Year
  Sex: Female

DRUGS (2)
  1. NEORAL [Suspect]
     Dosage: 350 MG, DAILY
  2. PREDNISONE [Suspect]
     Indication: IMMUNOSUPPRESSION

REACTIONS (4)
  - Pre-eclampsia [Unknown]
  - Blood creatinine decreased [Unknown]
  - Immunosuppressant drug level decreased [Unknown]
  - Maternal exposure during pregnancy [Unknown]
